FAERS Safety Report 22960481 (Version 2)
Quarter: 2023Q4

REPORT INFORMATION
  Report Type: Report from Study
  Country: IN (occurrence: None)
  Receive Date: 20230920
  Receipt Date: 20231024
  Transmission Date: 20240110
  Serious: Yes (Hospitalization)
  Sender: FDA-Public Use
  Company Number: 2023A211902

PATIENT
  Age: 23285 Day
  Sex: Female
  Weight: 51 kg

DRUGS (5)
  1. TAGRISSO [Suspect]
     Active Substance: OSIMERTINIB
     Indication: Lung neoplasm malignant
     Route: 048
     Dates: start: 20220919, end: 20230904
  2. TAGRISSO [Suspect]
     Active Substance: OSIMERTINIB
     Indication: Metastases to central nervous system
     Route: 048
     Dates: start: 20220919, end: 20230904
  3. TAGRISSO [Suspect]
     Active Substance: OSIMERTINIB
     Indication: Lung neoplasm malignant
     Route: 048
     Dates: start: 20230911
  4. TAGRISSO [Suspect]
     Active Substance: OSIMERTINIB
     Indication: Metastases to central nervous system
     Route: 048
     Dates: start: 20230911
  5. DEXA [Concomitant]
     Dosage: 4 MG 1-1-1
     Route: 048
     Dates: start: 20230903

REACTIONS (1)
  - Heart rate increased [Recovered/Resolved]

NARRATIVE: CASE EVENT DATE: 20230904
